FAERS Safety Report 9426525 (Version 1)
Quarter: 2013Q3

REPORT INFORMATION
  Report Type: Spontaneous
  Country: FR (occurrence: FR)
  Receive Date: 20130730
  Receipt Date: 20130730
  Transmission Date: 20140515
  Serious: Yes (Hospitalization)
  Sender: FDA-Public Use
  Company Number: FR-RANBAXY-2013RR-71754

PATIENT
  Age: 56 Year
  Sex: Male

DRUGS (3)
  1. AMOXICILLIN [Suspect]
     Indication: BRONCHITIS
     Dosage: UNK
     Route: 048
     Dates: start: 20130430, end: 20130430
  2. ASPIRIN [Concomitant]
     Indication: PRODUCT USED FOR UNKNOWN INDICATION
     Dosage: UNK
     Route: 065
  3. STREPSILS [Concomitant]
     Indication: PRODUCT USED FOR UNKNOWN INDICATION
     Dosage: UNK
     Route: 065

REACTIONS (7)
  - Dermatitis exfoliative [Recovered/Resolved]
  - Gastrointestinal disorder [Recovered/Resolved]
  - Purpura [Recovered/Resolved]
  - Petechiae [Recovered/Resolved]
  - Epidermal necrosis [Recovered/Resolved]
  - Alanine aminotransferase increased [Recovered/Resolved]
  - Acute generalised exanthematous pustulosis [Recovered/Resolved]
